APPROVED DRUG PRODUCT: LOPERAMIDE HYDROCHLORIDE
Active Ingredient: LOPERAMIDE HYDROCHLORIDE
Strength: 2MG
Dosage Form/Route: TABLET;ORAL
Application: A220153 | Product #001
Applicant: MARKSANS PHARMA LTD
Approved: Nov 17, 2025 | RLD: No | RS: No | Type: OTC